FAERS Safety Report 15087446 (Version 3)
Quarter: 2018Q3

REPORT INFORMATION
  Report Type: Report from Study
  Country: None (occurrence: DE)
  Receive Date: 20180628
  Receipt Date: 20180705
  Transmission Date: 20181010
  Serious: Yes (Hospitalization, Other)
  Sender: FDA-Public Use
  Company Number: DE-ABBVIE-18K-062-2395804-00

PATIENT
  Age: 62 Year
  Sex: Male
  Weight: 63 kg

DRUGS (5)
  1. CLOZAPIN [Concomitant]
     Active Substance: CLOZAPINE
     Indication: PRODUCT USED FOR UNKNOWN INDICATION
  2. CITALOPRAM [Concomitant]
     Active Substance: CITALOPRAM HYDROBROMIDE
     Indication: PRODUCT USED FOR UNKNOWN INDICATION
  3. RIVOTRIL [Concomitant]
     Active Substance: CLONAZEPAM
     Indication: PRODUCT USED FOR UNKNOWN INDICATION
  4. DUODOPA [Suspect]
     Active Substance: CARBIDOPA\LEVODOPA
     Indication: PARKINSON^S DISEASE
     Dosage: MD: 1.8 ML; CRD: 2.8 ML/H; CRN: 1.4 ML/H; ED: 1.8 ML
     Route: 050
     Dates: start: 20160520, end: 2018
  5. DUODOPA [Suspect]
     Active Substance: CARBIDOPA\LEVODOPA
     Dosage: MD: 2.2 ML;  CRD: 2.6 ML/H; CRN: 1.8 ML/H; ED: 1.8 ML
     Route: 050
     Dates: start: 2018

REACTIONS (3)
  - On and off phenomenon [Unknown]
  - Impulse-control disorder [Recovering/Resolving]
  - Hypersexuality [Recovering/Resolving]

NARRATIVE: CASE EVENT DATE: 20180614
